FAERS Safety Report 8573550-4 (Version None)
Quarter: 2012Q3

REPORT INFORMATION
  Report Type: 
  Country: None (occurrence: None)
  Receive Date: 20120806
  Receipt Date: 20120419
  Transmission Date: 20120928
  Serious: No
  Sender: FDA-Public Use
  Company Number: CA-009507513-2012SP022455

PATIENT

DRUGS (1)
  1. COPPERTONE KIDS CONTINUOUS SPRAY SUNSCREEN SPF-50 [Suspect]
     Indication: PROPHYLAXIS AGAINST SOLAR RADIATION
     Dosage: UNK UNK, UNKNOWN
     Route: 061

REACTIONS (6)
  - HEAT STROKE [None]
  - SUNBURN [None]
  - INSOMNIA [None]
  - BLISTER [None]
  - DISCOMFORT [None]
  - PAIN [None]
